FAERS Safety Report 11279431 (Version 1)
Quarter: 2015Q3

REPORT INFORMATION
  Report Type: Spontaneous
  Country: US (occurrence: US)
  Receive Date: 20150717
  Receipt Date: 20150717
  Transmission Date: 20151125
  Serious: Yes (Hospitalization, Congenital Anomaly, Other)
  Sender: FDA-Public Use
  Company Number: US-APOTEX-2015AP010692

PATIENT

DRUGS (4)
  1. PAROXETINE HYDROCHLORIDE. [Suspect]
     Active Substance: PAROXETINE HYDROCHLORIDE
     Dosage: 30 MG, BID
     Route: 064
  2. PAROXETINE HYDROCHLORIDE. [Suspect]
     Active Substance: PAROXETINE HYDROCHLORIDE
     Indication: PRODUCT USED FOR UNKNOWN INDICATION
     Dosage: 30 MG, UNK
     Route: 064
  3. TERBUTALINE [Concomitant]
     Active Substance: TERBUTALINE
     Indication: PREMATURE LABOUR
     Route: 064
  4. PAXIL [Suspect]
     Active Substance: PAROXETINE HYDROCHLORIDE
     Indication: PRODUCT USED FOR UNKNOWN INDICATION
     Dosage: 60 MG, UNK
     Route: 064

REACTIONS (9)
  - Head deformity [Unknown]
  - Foot deformity [Unknown]
  - Coeliac disease [Unknown]
  - Craniosynostosis [Unknown]
  - Cardiac murmur [Unknown]
  - Speech disorder developmental [Recovered/Resolved]
  - Foetal exposure during pregnancy [Unknown]
  - Motor developmental delay [Recovered/Resolved]
  - Plagiocephaly [Unknown]

NARRATIVE: CASE EVENT DATE: 201004
